FAERS Safety Report 5990040-3 (Version None)
Quarter: 2008Q4

REPORT INFORMATION
  Report Type: 
  Country: None (occurrence: None)
  Receive Date: 20081209
  Receipt Date: 20081127
  Transmission Date: 20090506
  Serious: Yes (Other)
  Sender: FDA-Public Use
  Company Number: 1-16981761

PATIENT
  Sex: Female
  Weight: 150 kg

DRUGS (1)
  1. TOPICORT LP [Suspect]
     Indication: DERMATITIS
     Dosage: TO NECK, ONCE, CUTANEOUS
     Route: 003
     Dates: start: 20081127

REACTIONS (2)
  - ALOPECIA [None]
  - APPLICATION SITE BURN [None]
